FAERS Safety Report 4900276-8 (Version None)
Quarter: 2006Q1

REPORT INFORMATION
  Report Type: 
  Country: None (occurrence: None)
  Receive Date: 20060203
  Receipt Date: 20060123
  Transmission Date: 20060701
  Serious: Yes (Life-Threatening)
  Sender: FDA-Public Use
  Company Number: AU-ROCHE-433178

PATIENT
  Age: 27 Year
  Sex: Female
  Weight: 60 kg

DRUGS (7)
  1. VALIUM [Suspect]
     Route: 065
  2. ENDONE [Suspect]
     Indication: DRUG USE FOR UNKNOWN INDICATION
     Route: 048
     Dates: start: 20050101
  3. CLONAZEPAM [Suspect]
     Route: 048
  4. LAMICTAL [Suspect]
     Route: 048
  5. WARFARIN SODIUM [Concomitant]
  6. MONOFEME [Concomitant]
  7. ACETAMINOPHEN [Concomitant]
     Dates: start: 20041210

REACTIONS (6)
  - APHASIA [None]
  - CONVULSION [None]
  - DRUG INEFFECTIVE [None]
  - DRUG LEVEL DECREASED [None]
  - DYSPHAGIA [None]
  - DYSPNOEA [None]
